FAERS Safety Report 8512977 (Version 5)
Quarter: 2012Q4

REPORT INFORMATION
  Report Type: 
  Country: US (occurrence: US)
  Receive Date: 20120413
  Receipt Date: 20121114
  Transmission Date: 20130627
  Serious: Yes (Congenital Anomaly, Other)
  Sender: FDA-Public Use
  Company Number: US-RB-039064-12

PATIENT
  Age: 0 None
  Sex: Male
  Weight: 3.2 kg

DRUGS (3)
  1. SUBOXONE TABLET [Suspect]
     Indication: DRUG DEPENDENCE
     Dosage: 8 mg daily
     Route: 064
     Dates: start: 201103, end: 201106
  2. BUPRENORPHINE [Suspect]
     Indication: DRUG DEPENDENCE
     Dosage: 16 mg daily
     Route: 064
     Dates: start: 201106, end: 20111215
  3. NICOTINE [Suspect]
     Indication: NICOTINE DEPENDENCE
     Dosage: Dosing details not provided
     Route: 064
     Dates: start: 201103, end: 20111215

REACTIONS (4)
  - Cleft palate [Not Recovered/Not Resolved]
  - Jaundice neonatal [Recovered/Resolved]
  - Feeding disorder neonatal [Recovered/Resolved]
  - Foetal exposure during pregnancy [Recovered/Resolved]
